FAERS Safety Report 14707675 (Version 1)
Quarter: 2018Q1

REPORT INFORMATION
  Report Type: Spontaneous
  Country: US (occurrence: US)
  Receive Date: 20180329
  Receipt Date: 20180329
  Transmission Date: 20180509
  Serious: Yes (Life-Threatening)
  Sender: FDA-Public Use
  Company Number: None

PATIENT
  Age: 59 Year
  Sex: Male
  Weight: 117 kg

DRUGS (1)
  1. LURASIDONE [Suspect]
     Active Substance: LURASIDONE
     Indication: DEPRESSION
     Route: 048
     Dates: start: 20170411, end: 20170629

REACTIONS (2)
  - Suicidal ideation [None]
  - Depression [None]

NARRATIVE: CASE EVENT DATE: 20170430
